FAERS Safety Report 20852182 (Version 1)
Quarter: 2022Q2

REPORT INFORMATION
  Report Type: 
  Country: US (occurrence: US)
  Receive Date: 20220520
  Receipt Date: 20220520
  Transmission Date: 20220721
  Serious: No
  Sender: FDA-Public Use
  Company Number: US-BIOCON-BCN-2022-000129

PATIENT

DRUGS (1)
  1. EVEROLIMUS [Suspect]
     Active Substance: EVEROLIMUS
     Indication: Product used for unknown indication

REACTIONS (2)
  - Accidental exposure to product packaging [Unknown]
  - Product packaging confusion [Unknown]
